FAERS Safety Report 4722619-0 (Version None)
Quarter: 2005Q3

REPORT INFORMATION
  Report Type: 
  Country: None (occurrence: None)
  Receive Date: 20050722
  Receipt Date: 20050425
  Transmission Date: 20060218
  Serious: Yes (Hospitalization)
  Sender: FDA-Public Use
  Company Number: US-MERCK-0504USA04449

PATIENT
  Age: 51 Year
  Sex: Male
  Weight: 84 kg

DRUGS (5)
  1. VIOXX [Suspect]
     Indication: ARTHRITIS
     Route: 048
     Dates: start: 20010313, end: 20040118
  2. VIOXX [Suspect]
     Route: 048
     Dates: start: 20010313, end: 20040118
  3. VIOXX [Suspect]
     Indication: GOUT
     Route: 048
     Dates: start: 20010313, end: 20040118
  4. VIOXX [Suspect]
     Route: 048
     Dates: start: 20010313, end: 20040118
  5. NAPROSYN [Concomitant]
     Route: 065
     Dates: start: 19990316, end: 20010201

REACTIONS (4)
  - BLOOD CHOLESTEROL INCREASED [None]
  - CARDIAC DISORDER [None]
  - HYPERTENSION [None]
  - MYOCARDIAL INFARCTION [None]
